FAERS Safety Report 6371357-X (Version None)
Quarter: 2009Q3

REPORT INFORMATION
  Report Type: 
  Country: None (occurrence: None)
  Receive Date: 20090923
  Receipt Date: 20090921
  Transmission Date: 20100115
  Serious: Yes (Other)
  Sender: FDA-Public Use
  Company Number: US-JNJFOC-20090900447

PATIENT
  Sex: Male
  Weight: 81.65 kg

DRUGS (2)
  1. ARESTIN [Suspect]
     Indication: GINGIVAL RECESSION
     Route: 065
     Dates: start: 20090803
  2. COUMADIN [Suspect]
     Indication: DRUG USE FOR UNKNOWN INDICATION
     Route: 065

REACTIONS (2)
  - ANTICOAGULATION DRUG LEVEL ABOVE THERAPEUTIC [None]
  - CARDIAC ABLATION [None]
